FAERS Safety Report 4851783-8 (Version None)
Quarter: 2005Q4

REPORT INFORMATION
  Report Type: 
  Country: None (occurrence: None)
  Receive Date: 20051209
  Receipt Date: 20051124
  Transmission Date: 20060501
  Serious: Yes (Hospitalization)
  Sender: FDA-Public Use
  Company Number: 12926

PATIENT
  Age: 31 Year
  Sex: Female

DRUGS (4)
  1. CARBOPLATIN [Suspect]
     Indication: BREAST CANCER
     Dosage: 130.1 MG PER_CYCLE IV
     Route: 042
     Dates: start: 20011211, end: 20020328
  2. TAXOTERE [Suspect]
     Indication: BREAST CANCER
     Dosage: 154.5 MG PER_CYCLE IV
     Route: 042
     Dates: start: 20011211, end: 20020628
  3. TAXOTERE [Suspect]
  4. HERCEPTIN [Suspect]
     Indication: BREAST CANCER
     Dosage: 204 MG PER_CYCLE IV
     Route: 042
     Dates: start: 20011211

REACTIONS (3)
  - ASTHENIA [None]
  - DYSPNOEA [None]
  - SINUS TACHYCARDIA [None]
